FAERS Safety Report 6812897-6 (Version None)
Quarter: 2010Q3

REPORT INFORMATION
  Report Type: 
  Country: None (occurrence: None)
  Receive Date: 20100701
  Receipt Date: 20100621
  Transmission Date: 20110219
  Serious: Yes (Hospitalization)
  Sender: FDA-Public Use
  Company Number: KR-MYLANLABS-2010S1010903

PATIENT
  Age: 39 Year
  Sex: Female
  Weight: 77 kg

DRUGS (7)
  1. AMINOPHYLLINE [Suspect]
     Indication: WEIGHT DECREASED
     Route: 059
  2. EPINEPHRINE [Suspect]
     Indication: WEIGHT DECREASED
     Route: 059
  3. FLUOXETINE [Suspect]
     Indication: WEIGHT DECREASED
     Route: 048
  4. EPHEDRINE [Suspect]
     Indication: WEIGHT DECREASED
     Route: 048
  5. CAFFEINE [Suspect]
     Indication: WEIGHT DECREASED
     Route: 048
  6. GREEN TEA /01578101/ [Suspect]
     Indication: WEIGHT DECREASED
     Route: 048
  7. LIDOCAINE [Concomitant]
     Indication: WEIGHT DECREASED
     Route: 059

REACTIONS (1)
  - COLITIS ISCHAEMIC [None]
